FAERS Safety Report 5956423-2 (Version None)
Quarter: 2008Q4

REPORT INFORMATION
  Report Type: 
  Country: None (occurrence: None)
  Receive Date: 20081118
  Receipt Date: 20081106
  Transmission Date: 20090506
  Serious: Yes (Hospitalization)
  Sender: FDA-Public Use
  Company Number: BE-BAYER-200829969GPV

PATIENT
  Age: 82 Year
  Sex: Female

DRUGS (4)
  1. CIPROFLOXACIN [Suspect]
     Indication: DRUG USE FOR UNKNOWN INDICATION
     Route: 042
  2. OMEPRAZOLE [Suspect]
     Indication: DYSPEPSIA
     Route: 065
  3. SULFAMETHOXAZOLE [Concomitant]
     Indication: PYURIA
     Route: 065
  4. TRIMETHOPRIM [Concomitant]
     Indication: PYURIA
     Route: 065

REACTIONS (5)
  - INFLAMMATION [None]
  - LEUKOCYTURIA [None]
  - PYREXIA [None]
  - RENAL FAILURE [None]
  - TUBULOINTERSTITIAL NEPHRITIS [None]
